FAERS Safety Report 4924496-1 (Version None)
Quarter: 2006Q1

REPORT INFORMATION
  Report Type: 
  Country: None (occurrence: None)
  Receive Date: 20060227
  Receipt Date: 20060217
  Transmission Date: 20060701
  Serious: Yes (Other)
  Sender: FDA-Public Use
  Company Number: US-AVENTIS-200611700US

PATIENT
  Sex: Female
  Weight: 63.5 kg

DRUGS (2)
  1. CLOMID [Suspect]
     Dates: start: 20060101, end: 20060101
  2. PROGESTERONE [Concomitant]
     Dosage: DOSE: UNK

REACTIONS (2)
  - HEADACHE [None]
  - SUBARACHNOID HAEMORRHAGE [None]
